FAERS Safety Report 18948085 (Version 1)
Quarter: 2021Q1

REPORT INFORMATION
  Report Type: Spontaneous
  Country: DE (occurrence: DE)
  Receive Date: 20210226
  Receipt Date: 20210226
  Transmission Date: 20210420
  Serious: Yes (Hospitalization, Other)
  Sender: FDA-Public Use
  Company Number: DE-VERTEX PHARMACEUTICALS-2021-003224

PATIENT
  Sex: Female

DRUGS (4)
  1. SYMKEVI [Suspect]
     Active Substance: IVACAFTOR\TEZACAFTOR
     Indication: CYSTIC FIBROSIS
     Dosage: 1 DOSAGE FORM (100 MG TEZACAFTOR/150 MG IVACAFTOR), QD
     Route: 048
  2. COTRIM [Interacting]
     Active Substance: SULFAMETHOXAZOLE\TRIMETHOPRIM
     Indication: PRODUCT USED FOR UNKNOWN INDICATION
     Dosage: COTRIM 960 MG
     Route: 065
  3. KALYDECO [Interacting]
     Active Substance: IVACAFTOR
     Indication: CYSTIC FIBROSIS
     Dosage: 150 MG, QD
     Route: 048
  4. COTRIM [Interacting]
     Active Substance: SULFAMETHOXAZOLE\TRIMETHOPRIM
     Dosage: COTRIM 960 MG
     Route: 065

REACTIONS (5)
  - Chills [Unknown]
  - Pyrexia [Recovered/Resolved]
  - Dyspnoea [Unknown]
  - Heart rate increased [Unknown]
  - Tremor [Unknown]

NARRATIVE: CASE EVENT DATE: 201909
